FAERS Safety Report 26159936 (Version 1)
Quarter: 2025Q4

REPORT INFORMATION
  Report Type: Spontaneous
  Country: US (occurrence: None)
  Receive Date: 20251216
  Receipt Date: 20251216
  Transmission Date: 20260117
  Serious: No
  Sender: ENDO
  Company Number: US-ENDO USA, INC.-2025-001598

PATIENT
  Sex: Male
  Weight: 71.202 kg

DRUGS (2)
  1. XIAFLEX [Suspect]
     Active Substance: COLLAGENASE CLOSTRIDIUM HISTOLYTICUM
     Indication: Peyronie^s disease
     Dosage: 0.58 MILLIGRAM, ONCE EVERY 6WKS (1X ON 2 DAYS, 1-3 DAYS APART)
  2. XIAFLEX [Suspect]
     Active Substance: COLLAGENASE CLOSTRIDIUM HISTOLYTICUM
     Dosage: 0.58 MILLIGRAM, ONCE EVERY 6WKS (1X ON 2 DAYS, 1-3 DAYS APART)

REACTIONS (5)
  - Nausea [Unknown]
  - Mucous stools [Unknown]
  - Constipation [Unknown]
  - Frequent bowel movements [Unknown]
  - Haematochezia [Unknown]

NARRATIVE: CASE EVENT DATE: 20250101
